FAERS Safety Report 24991808 (Version 2)
Quarter: 2025Q1

REPORT INFORMATION
  Report Type: Spontaneous
  Country: FR (occurrence: FR)
  Receive Date: 20250220
  Receipt Date: 20250228
  Transmission Date: 20250409
  Serious: Yes (Death, Life-Threatening)
  Sender: NOVARTIS
  Company Number: None

PATIENT
  Age: 70 Year
  Sex: Male
  Weight: 61 kg

DRUGS (3)
  1. RYDAPT [Suspect]
     Active Substance: MIDOSTAURIN
     Indication: Advanced systemic mastocytosis
     Route: 048
     Dates: start: 20250127, end: 20250207
  2. VIDAZA [Suspect]
     Active Substance: AZACITIDINE
     Indication: Advanced systemic mastocytosis
     Route: 058
     Dates: start: 20250127, end: 20250131
  3. DEXAMETHASONE [Concomitant]
     Active Substance: DEXAMETHASONE
     Indication: Advanced systemic mastocytosis
     Route: 042
     Dates: start: 20250127, end: 20250130

REACTIONS (1)
  - Toxic epidermal necrolysis [Fatal]

NARRATIVE: CASE EVENT DATE: 20250206
